FAERS Safety Report 18355926 (Version 1)
Quarter: 2020Q4

REPORT INFORMATION
  Report Type: Spontaneous
  Country: JP (occurrence: JP)
  Receive Date: 20201007
  Receipt Date: 20201007
  Transmission Date: 20210114
  Serious: Yes (Other)
  Sender: FDA-Public Use
  Company Number: JP-PFIZER INC-2020377786

PATIENT
  Sex: Female

DRUGS (2)
  1. AMLODIN [Suspect]
     Active Substance: AMLODIPINE BESYLATE
     Indication: HYPERTENSION
     Dosage: UNK
     Route: 048
  2. EFFEXOR [Suspect]
     Active Substance: VENLAFAXINE HYDROCHLORIDE
     Dosage: UNK, 1X/DAY (IN THE NIGHT)
     Route: 048
     Dates: start: 20200929

REACTIONS (10)
  - Feeling abnormal [Unknown]
  - Dysarthria [Unknown]
  - Tremor [Not Recovered/Not Resolved]
  - Gait inability [Unknown]
  - Chest pain [Unknown]
  - Seizure [Unknown]
  - Palpitations [Unknown]
  - Dyskinesia [Unknown]
  - Arrhythmia [Unknown]
  - Hyperhidrosis [Unknown]

NARRATIVE: CASE EVENT DATE: 2020
